FAERS Safety Report 8586397-X (Version None)
Quarter: 2012Q3

REPORT INFORMATION
  Report Type: 
  Country: None (occurrence: None)
  Receive Date: 20120810
  Receipt Date: 20120705
  Transmission Date: 20120928
  Serious: No
  Sender: FDA-Public Use
  Company Number: US-ASTRAZENECA-2012SE25226

PATIENT
  Age: 58 Year
  Sex: Male

DRUGS (1)
  1. SEROQUEL [Suspect]
     Indication: SLEEP DISORDER
     Route: 048

REACTIONS (8)
  - DRUG DOSE OMISSION [None]
  - FEELING ABNORMAL [None]
  - MALAISE [None]
  - MENTAL IMPAIRMENT [None]
  - MENTAL DISORDER [None]
  - PAIN [None]
  - INSOMNIA [None]
  - ABNORMAL BEHAVIOUR [None]
